FAERS Safety Report 7056554-2 (Version None)
Quarter: 2010Q4

REPORT INFORMATION
  Report Type: 
  Country: None (occurrence: None)
  Receive Date: 20101018
  Receipt Date: 20101013
  Transmission Date: 20110411
  Serious: Yes (Death, Other)
  Sender: FDA-Public Use
  Company Number: CL-253-2010

PATIENT
  Age: 80 Year
  Sex: Male

DRUGS (9)
  1. CIPROFLOXACIN [Suspect]
     Indication: SEPSIS
     Dosage: 150MG INTRAVENOUS
     Route: 042
  2. ASPIRIN [Concomitant]
  3. CARBAMAZEPINE [Concomitant]
  4. CLOPIDOGREL HYDROGEN SULFATE [Concomitant]
  5. GLYCERYL TRINITRATE [Concomitant]
  6. LOPFEPRAMINE [Concomitant]
  7. MORPHINE SULFATE [Concomitant]
  8. PARACETAMOL [Concomitant]
  9. ROSUVASTATIN [Concomitant]

REACTIONS (1)
  - ANAPHYLACTIC REACTION [None]
